FAERS Safety Report 5379555-9 (Version None)
Quarter: 2007Q3

REPORT INFORMATION
  Report Type: 
  Country: None (occurrence: None)
  Receive Date: 20070703
  Receipt Date: 20070620
  Transmission Date: 20080115
  Serious: Yes (Hospitalization, Other)
  Sender: FDA-Public Use
  Company Number: 07-001333

PATIENT
  Age: 56 Year
  Sex: Female
  Weight: 88.4 kg

DRUGS (15)
  1. FEMRING [Suspect]
     Indication: OESTROGEN REPLACEMENT THERAPY
     Dosage: 0.05 MG, QD, VAGINAL
     Route: 067
     Dates: start: 20030101, end: 20070601
  2. SYNTHROID [Concomitant]
  3. ACIPHEX [Concomitant]
  4. VALIUM [Concomitant]
  5. CLONIDINE [Concomitant]
  6. BUPROPION HCL [Concomitant]
  7. LIPITOR [Concomitant]
  8. BONIVA (IBANDRONATE SODIUM) [Concomitant]
  9. MIRALAX [Concomitant]
  10. MULTIVITAMIN [Concomitant]
  11. CRANBERRY (VACCINIUM MACROCARPON) [Concomitant]
  12. ZOFRAN [Concomitant]
  13. LIBRAX [Concomitant]
  14. THERAQUIL [Concomitant]
  15. DURAGESIC-100 [Concomitant]

REACTIONS (5)
  - HISTOPLASMOSIS [None]
  - MEDICAL DEVICE COMPLICATION [None]
  - PNEUMONIA [None]
  - PROCEDURAL PAIN [None]
  - SKELETAL INJURY [None]
